FAERS Safety Report 9604524 (Version 2)
Quarter: 2013Q4

REPORT INFORMATION
  Report Type: Not Available
  Country: PT (occurrence: PT)
  Receive Date: 20131008
  Receipt Date: 20131008
  Transmission Date: 20140711
  Serious: Yes (Other)
  Sender: FDA-Public Use
  Company Number: PT-ASTELLAS-2013EU008163

PATIENT
  Age: 76 Year
  Sex: Female
  Weight: 52 kg

DRUGS (11)
  1. BETMIGA [Suspect]
     Indication: HYPERTONIC BLADDER
     Dosage: 50 MG, UID/QD
     Route: 048
     Dates: start: 20130829, end: 20130829
  2. BETMIGA [Suspect]
     Indication: PROPHYLAXIS
  3. DIOVAN [Concomitant]
     Indication: HYPERTENSION
     Dosage: 80 MG, UID/QD
     Route: 048
  4. DIOVAN [Concomitant]
     Indication: HYPERTENSION
     Route: 048
  5. ANSILOR [Concomitant]
     Indication: INSOMNIA
     Dosage: 2.5 MG, UID/QD
     Route: 048
  6. ANSILOR [Concomitant]
     Indication: SLEEP DISORDER
  7. GINCOBEN [Concomitant]
     Indication: AMNESIA
     Dosage: 40 MG, UID/QD
     Route: 048
  8. GINCOBEN [Concomitant]
     Route: 048
  9. FURANTOIN [Concomitant]
     Indication: URINARY TRACT INFECTION
     Dosage: 100 MG, TID
     Route: 048
  10. LORENIN [Concomitant]
     Indication: INSOMNIA
     Dosage: 2.5 MG, UID/QD
  11. FURADANTINA MC [Concomitant]
     Indication: URINARY TRACT INFECTION
     Dosage: 100 MG, UID/QD
     Route: 048

REACTIONS (4)
  - Nausea [Recovered/Resolved]
  - Cold sweat [Recovered/Resolved]
  - Syncope [Recovered/Resolved]
  - Hyperhidrosis [Recovered/Resolved]
